FAERS Safety Report 15642914 (Version 2)
Quarter: 2018Q4

REPORT INFORMATION
  Report Type: Spontaneous
  Country: US (occurrence: US)
  Receive Date: 20181121
  Receipt Date: 20181213
  Transmission Date: 20190205
  Serious: Yes (Other)
  Sender: FDA-Public Use
  Company Number: US-APOTEX-2018AP024549

PATIENT
  Age: 69 Year
  Sex: Male

DRUGS (1)
  1. MIDODRINE [Suspect]
     Active Substance: MIDODRINE
     Indication: PRODUCT USED FOR UNKNOWN INDICATION
     Dosage: UNK
     Route: 065
     Dates: end: 20181004

REACTIONS (5)
  - Loss of consciousness [Unknown]
  - Drug effect incomplete [Unknown]
  - Hypoaesthesia [Recovered/Resolved]
  - Blood pressure increased [Unknown]
  - Paraesthesia [Recovered/Resolved]
